FAERS Safety Report 21550363 (Version 8)
Quarter: 2024Q1

REPORT INFORMATION
  Report Type: Spontaneous
  Country: DE (occurrence: DE)
  Receive Date: 20221103
  Receipt Date: 20240129
  Transmission Date: 20240409
  Serious: Yes (Death, Life-Threatening, Hospitalization, Other)
  Sender: FDA-Public Use
  Company Number: DE-002147023-NVSC2022DE245136

PATIENT
  Sex: Male

DRUGS (15)
  1. KYMRIAH [Suspect]
     Active Substance: TISAGENLECLEUCEL
     Indication: Diffuse large B-cell lymphoma refractory
     Dosage: 3.8 X10E8 CAR-POSITIVE CELLS, ONCE/SINGLE
     Route: 042
     Dates: start: 20220829
  2. KYMRIAH [Suspect]
     Active Substance: TISAGENLECLEUCEL
     Indication: Central nervous system lymphoma
  3. VALACYCLOVIR [Concomitant]
     Active Substance: VALACYCLOVIR HYDROCHLORIDE
     Indication: Product used for unknown indication
     Dosage: 500 MG, QD (1-0-0-0)
     Route: 065
  4. COTRIMOXAZOLE [Concomitant]
     Active Substance: SULFAMETHOXAZOLE\TRIMETHOPRIM
     Indication: Product used for unknown indication
     Dosage: 960 MG, QD 1-0-0-0 (ONLY MONDAY AND THURSDAY)
     Route: 065
  5. POSACONAZOLE [Concomitant]
     Active Substance: POSACONAZOLE
     Indication: Product used for unknown indication
     Dosage: 300 MG, QD (1-0-0-0)
     Route: 065
  6. AMLODIPINE [Concomitant]
     Active Substance: AMLODIPINE BESYLATE
     Indication: Product used for unknown indication
     Dosage: 5 MG, BID (1-0-1-0)
     Route: 065
  7. PRAVASTATIN [Concomitant]
     Active Substance: PRAVASTATIN
     Indication: Product used for unknown indication
     Dosage: 40 MG
     Route: 065
  8. EZETIMIBE [Concomitant]
     Active Substance: EZETIMIBE
     Indication: Product used for unknown indication
     Dosage: 10 MG
     Route: 065
  9. PANTOPRAZOLE [Concomitant]
     Active Substance: PANTOPRAZOLE
     Indication: Product used for unknown indication
     Dosage: 40 MG, QD
     Route: 065
  10. LEVETIRACETAM [Concomitant]
     Active Substance: LEVETIRACETAM
     Indication: Product used for unknown indication
     Dosage: 750 MG, BID (1-0-1-0)
     Route: 065
  11. VIMPAT [Concomitant]
     Active Substance: LACOSAMIDE
     Indication: Product used for unknown indication
     Dosage: 200 MG, BID (1-0-1-0)
     Route: 065
  12. ALFUZOSIN [Concomitant]
     Active Substance: ALFUZOSIN
     Indication: Product used for unknown indication
     Dosage: 10 MG, QD (1-0-0-0)
     Route: 065
  13. LEVOTHYROXINE SODIUM [Concomitant]
     Active Substance: LEVOTHYROXINE SODIUM
     Indication: Product used for unknown indication
     Dosage: 50 UG, QD (1-0-0-0)
     Route: 065
  14. AMPHO-MORONAL [Concomitant]
     Active Substance: AMPHOTERICIN B
     Indication: Product used for unknown indication
     Dosage: UNK, QID (1-1-1-1)
     Route: 065
  15. GLANDOMED [Concomitant]
     Indication: Product used for unknown indication
     Dosage: UNK, QID (1-1-1-1)
     Route: 065

REACTIONS (15)
  - T-cell lymphoma [Fatal]
  - Hypofibrinogenaemia [Fatal]
  - Lymphocytosis [Fatal]
  - Intra-abdominal haemorrhage [Fatal]
  - Pancytopenia [Fatal]
  - Shock haemorrhagic [Fatal]
  - Haemophagocytic lymphohistiocytosis [Fatal]
  - Hypotension [Fatal]
  - Pyrexia [Fatal]
  - Blood lactate dehydrogenase increased [Fatal]
  - Bone marrow infiltration [Unknown]
  - Leukocytosis [Unknown]
  - Second primary malignancy [Unknown]
  - Out of specification test results [Unknown]
  - Gene mutation [Unknown]

NARRATIVE: CASE EVENT DATE: 20220829
